FAERS Safety Report 18494842 (Version 11)
Quarter: 2023Q4

REPORT INFORMATION
  Report Type: Spontaneous
  Country: GB (occurrence: GB)
  Receive Date: 20201112
  Receipt Date: 20231031
  Transmission Date: 20240109
  Serious: Yes (Other)
  Sender: FDA-Public Use
  Company Number: None

PATIENT
  Age: 47 Year
  Sex: Female

DRUGS (3)
  1. LINEZOLID [Suspect]
     Active Substance: LINEZOLID
     Indication: Product used for unknown indication
     Dosage: UNK (SOLUTION FOR INFUSION)
     Route: 042
  2. METFORMIN HYDROCHLORIDE [Suspect]
     Active Substance: METFORMIN HYDROCHLORIDE
     Indication: Product used for unknown indication
     Dosage: 230 DOSAGE FORM (PROLONGED-RELEASE TABLET)
     Route: 048
  3. DAPTOMYCIN [Suspect]
     Active Substance: DAPTOMYCIN
     Indication: Product used for unknown indication
     Dosage: UNK (HIGH DOSE)
     Route: 042

REACTIONS (3)
  - Blood creatine phosphokinase increased [Unknown]
  - Blood creatine phosphokinase increased [Recovering/Resolving]
  - Lactic acidosis [Recovered/Resolved]
